FAERS Safety Report 15764611 (Version 3)
Quarter: 2019Q2

REPORT INFORMATION
  Report Type: Report from Study
  Country: US (occurrence: US)
  Receive Date: 20181227
  Receipt Date: 20190522
  Transmission Date: 20190711
  Serious: Yes (Other)
  Sender: FDA-Public Use
  Company Number: PHEH2018US054022

PATIENT
  Age: 67 Year
  Sex: Male

DRUGS (1)
  1. COSENTYX [Suspect]
     Active Substance: SECUKINUMAB
     Indication: PSORIASIS
     Dosage: 300 MG, QMO (EVERY FOUR WEEKS)
     Route: 058
     Dates: start: 20180327

REACTIONS (5)
  - Pruritus [Unknown]
  - Psoriasis [Unknown]
  - Emphysema [Not Recovered/Not Resolved]
  - Transient ischaemic attack [Unknown]
  - Drug ineffective [Unknown]
